FAERS Safety Report 18244630 (Version 1)
Quarter: 2020Q3

REPORT INFORMATION
  Report Type: Spontaneous
  Country: IT (occurrence: IT)
  Receive Date: 20200909
  Receipt Date: 20200909
  Transmission Date: 20201103
  Serious: Yes (Hospitalization)
  Sender: FDA-Public Use
  Company Number: IT-ROCHE-2673511

PATIENT
  Age: 40 Year
  Sex: Male

DRUGS (2)
  1. AKINETON [Suspect]
     Active Substance: BIPERIDEN HYDROCHLORIDE
     Indication: INTENTIONAL OVERDOSE
     Route: 065
     Dates: start: 20200829, end: 20200829
  2. RIVOTRIL [Suspect]
     Active Substance: CLONAZEPAM
     Indication: INTENTIONAL OVERDOSE
     Route: 048
     Dates: start: 20200829, end: 20200829

REACTIONS (2)
  - Intentional overdose [Unknown]
  - Hypotension [Not Recovered/Not Resolved]

NARRATIVE: CASE EVENT DATE: 20200829
